FAERS Safety Report 21630030 (Version 2)
Quarter: 2022Q4

REPORT INFORMATION
  Report Type: Spontaneous
  Country: DE (occurrence: DE)
  Receive Date: 20221122
  Receipt Date: 20221215
  Transmission Date: 20230113
  Serious: No
  Sender: FDA-Public Use
  Company Number: DE-ALK-ABELLO A/S-2022AA003872

PATIENT

DRUGS (1)
  1. ACARIZAX [Suspect]
     Active Substance: DERMATOPHAGOIDES FARINAE\DERMATOPHAGOIDES PTERONYSSINUS
     Indication: Rhinitis allergic
     Dosage: 12 SQ-HDM
     Route: 060
     Dates: start: 20221108, end: 20221108

REACTIONS (3)
  - Vomiting [Recovered/Resolved]
  - Blood pressure decreased [Unknown]
  - Heart rate increased [Unknown]

NARRATIVE: CASE EVENT DATE: 20221108
